FAERS Safety Report 5993304-2 (Version None)
Quarter: 2008Q4

REPORT INFORMATION
  Report Type: 
  Country: None (occurrence: None)
  Receive Date: 20081212
  Receipt Date: 20081201
  Transmission Date: 20090506
  Serious: Yes (Life-Threatening, Hospitalization, Other)
  Sender: FDA-Public Use
  Company Number: US-NOVOPROD-278076

PATIENT
  Sex: Female
  Weight: 69.388 kg

DRUGS (5)
  1. LEVEMIR [Suspect]
     Indication: INSULIN-REQUIRING TYPE 2 DIABETES MELLITUS
     Dosage: 30 IU, QD
     Route: 058
     Dates: start: 20080523
  2. LEVEMIR [Suspect]
     Dosage: 15 IU, BID
     Route: 058
  3. SYNTHROID [Concomitant]
     Indication: HYPOTHYROIDISM
  4. AVAPRO [Concomitant]
     Indication: HYPERTENSION
     Dates: start: 20080523
  5. LASIX [Concomitant]
     Indication: DRUG USE FOR UNKNOWN INDICATION
     Dates: start: 20080523

REACTIONS (4)
  - ACUTE MYOCARDIAL INFARCTION [None]
  - ANAEMIA [None]
  - COLONIC POLYP [None]
  - CORONARY ARTERY DISEASE [None]
